FAERS Safety Report 13013658 (Version 1)
Quarter: 2016Q4

REPORT INFORMATION
  Report Type: Spontaneous
  Country: FR (occurrence: FR)
  Receive Date: 20161209
  Receipt Date: 20161209
  Transmission Date: 20170207
  Serious: Yes (Hospitalization, Other)
  Sender: FDA-Public Use
  Company Number: FR-INDIVIOR LIMITED-INDV-097000-2016

PATIENT
  Age: 42 Year
  Sex: Female

DRUGS (4)
  1. ZOLPIDEM [Concomitant]
     Active Substance: ZOLPIDEM\ZOLPIDEM TARTRATE
     Indication: PRODUCT USED FOR UNKNOWN INDICATION
     Dosage: 1 DF THE EVENING AT BEDTIME
     Route: 065
  2. SUBUTEX [Suspect]
     Active Substance: BUPRENORPHINE HYDROCHLORIDE
     Indication: PRODUCT USED FOR UNKNOWN INDICATION
     Dosage: 4MG IN THE MORNING AND 20MG IN THE EVENING
     Route: 060
  3. NICOTINE. [Suspect]
     Active Substance: NICOTINE
     Indication: PRODUCT USED FOR UNKNOWN INDICATION
     Dosage: 27 PACK-YEAR
     Route: 055
  4. ALCOHOL. [Suspect]
     Active Substance: ALCOHOL
     Indication: PRODUCT USED FOR UNKNOWN INDICATION
     Dosage: 2 WHISKEY GLASSES, DAILY
     Route: 048

REACTIONS (6)
  - Intentional product misuse [Recovering/Resolving]
  - Pancreatitis acute [Recovering/Resolving]
  - Drug dependence [Recovering/Resolving]
  - Intentional overdose [Recovering/Resolving]
  - Alcohol abuse [Not Recovered/Not Resolved]
  - Systemic inflammatory response syndrome [Unknown]
